FAERS Safety Report 20445481 (Version 1)
Quarter: 2022Q1

REPORT INFORMATION
  Report Type: Spontaneous
  Country: US (occurrence: US)
  Receive Date: 20220208
  Receipt Date: 20220208
  Transmission Date: 20220423
  Serious: Yes (Disabling)
  Sender: FDA-Public Use
  Company Number: US-JNJFOC-20220215137

PATIENT

DRUGS (1)
  1. XARELTO [Suspect]
     Active Substance: RIVAROXABAN
     Indication: Fibrin D dimer increased
     Dosage: 15 MG TWICE A DAY OR 20 MG
     Route: 048
     Dates: start: 202003

REACTIONS (2)
  - Subarachnoid haemorrhage [Recovering/Resolving]
  - Fall [Recovering/Resolving]
